FAERS Safety Report 10593569 (Version 2)
Quarter: 2014Q4

REPORT INFORMATION
  Report Type: Spontaneous
  Country: US (occurrence: US)
  Receive Date: 20141119
  Receipt Date: 20141119
  Transmission Date: 20150529
  Serious: Yes (Hospitalization, Other)
  Sender: FDA-Public Use
  Company Number: US-GILEAD-2014-0121803

PATIENT
  Age: 57 Year
  Sex: Female

DRUGS (2)
  1. ADCIRCA [Concomitant]
     Active Substance: TADALAFIL
  2. LETAIRIS [Suspect]
     Active Substance: AMBRISENTAN
     Indication: PULMONARY HYPERTENSION
     Dosage: 5 MG, QD
     Route: 065
     Dates: start: 20141027

REACTIONS (7)
  - Fluid intake restriction [Unknown]
  - Dyspnoea [Unknown]
  - Dry mouth [Unknown]
  - Chromaturia [Unknown]
  - Headache [Unknown]
  - Nasal congestion [Unknown]
  - Pulmonary arterial hypertension [Unknown]
